FAERS Safety Report 12363687 (Version 1)
Quarter: 2016Q2

REPORT INFORMATION
  Report Type: Spontaneous
  Country: US (occurrence: None)
  Receive Date: 20160512
  Receipt Date: 20160512
  Transmission Date: 20160815
  Serious: No
  Sender: FDA-Public Use
  Company Number: None

PATIENT
  Age: 83 Year
  Sex: Female

DRUGS (1)
  1. IBRANCE [Suspect]
     Active Substance: PALBOCICLIB
     Dosage: DAILY 21 DAYS ON, 7
     Route: 048
     Dates: start: 20151027

REACTIONS (2)
  - Onychomadesis [None]
  - Skin discolouration [None]

NARRATIVE: CASE EVENT DATE: 20160415
